FAERS Safety Report 16684837 (Version 1)
Quarter: 2019Q3

REPORT INFORMATION
  Report Type: Spontaneous
  Country: US (occurrence: US)
  Receive Date: 20190808
  Receipt Date: 20190808
  Transmission Date: 20191004
  Serious: No
  Sender: FDA-Public Use
  Company Number: US-JNJFOC-20190715144

PATIENT
  Age: 29 Year
  Sex: Male

DRUGS (1)
  1. TREMFYA [Suspect]
     Active Substance: GUSELKUMAB
     Indication: PSORIASIS
     Dosage: SERIAL NO: 4849128
     Route: 030
     Dates: start: 20190521

REACTIONS (5)
  - Incorrect route of product administration [Unknown]
  - Product storage error [Unknown]
  - Product dose omission [Not Recovered/Not Resolved]
  - Off label use [Unknown]
  - Product availability issue [Not Recovered/Not Resolved]

NARRATIVE: CASE EVENT DATE: 201907
